FAERS Safety Report 11005846 (Version 1)
Quarter: 2015Q2

REPORT INFORMATION
  Report Type: Spontaneous
  Country: CN (occurrence: CN)
  Receive Date: 20150409
  Receipt Date: 20150409
  Transmission Date: 20150821
  Serious: Yes (Hospitalization, Other)
  Sender: FDA-Public Use
  Company Number: CN-BAYER-2014-180022

PATIENT
  Age: 54 Year
  Sex: Male

DRUGS (2)
  1. NEXAVAR [Suspect]
     Active Substance: SORAFENIB
     Indication: HEPATOCELLULAR CARCINOMA
     Dosage: 400 MG, BID
     Route: 048
     Dates: start: 20141118, end: 20141128
  2. NEXAVAR [Suspect]
     Active Substance: SORAFENIB
     Indication: HEPATOCELLULAR CARCINOMA
     Dosage: 400 MG, BID
     Route: 048
     Dates: start: 20141202

REACTIONS (8)
  - Varicose vein [None]
  - Varicose vein [Recovered/Resolved]
  - Rash [None]
  - Gastric haemorrhage [Recovered/Resolved]
  - Diarrhoea [None]
  - Gastric haemorrhage [Recovered/Resolved]
  - Gastric haemorrhage [None]
  - Pruritus [None]

NARRATIVE: CASE EVENT DATE: 20141129
